FAERS Safety Report 19924364 (Version 1)
Quarter: 2021Q4

REPORT INFORMATION
  Report Type: Spontaneous
  Country: US (occurrence: US)
  Receive Date: 20211006
  Receipt Date: 20211006
  Transmission Date: 20220303
  Serious: No
  Sender: FDA-Public Use
  Company Number: US-TEVA-2021-US-1962196

PATIENT
  Sex: Female

DRUGS (1)
  1. COPAXONE [Suspect]
     Active Substance: GLATIRAMER ACETATE
     Dosage: FORM OF ADMIN: AUTOJECT2, FORM STRENGTH AND DOSE: UNKNOWN
     Route: 065

REACTIONS (2)
  - Injection site bruising [Unknown]
  - Incorrect drug administration rate [Unknown]
